FAERS Safety Report 17433877 (Version 2)
Quarter: 2020Q2

REPORT INFORMATION
  Report Type: Report from Study
  Country: US (occurrence: US)
  Receive Date: 20200219
  Receipt Date: 20200403
  Transmission Date: 20200713
  Serious: Yes (Hospitalization, Other)
  Sender: FDA-Public Use
  Company Number: US-ROCHE-2548499

PATIENT
  Age: 87 Year
  Sex: Female
  Weight: 65.83 kg

DRUGS (1)
  1. ACTEMRA [Suspect]
     Active Substance: TOCILIZUMAB
     Indication: TEMPORAL ARTERITIS
     Dosage: INJECT 162 MG SUBCUTANEOUSLY EVERY 14 DAY(S)
     Route: 058
     Dates: start: 2019

REACTIONS (4)
  - Fall [Unknown]
  - Wrist fracture [Recovered/Resolved]
  - Pelvic fracture [Not Recovered/Not Resolved]
  - Internal haemorrhage [Recovered/Resolved]

NARRATIVE: CASE EVENT DATE: 202001
